FAERS Safety Report 4470071-5 (Version None)
Quarter: 2004Q3

REPORT INFORMATION
  Report Type: 
  Country: None (occurrence: None)
  Receive Date: 20040910
  Receipt Date: 20040805
  Transmission Date: 20050211
  Serious: No
  Sender: FDA-Public Use
  Company Number: 2004227429US

PATIENT

DRUGS (1)
  1. BEXTRA [Suspect]
     Indication: BACK PAIN
     Dosage: 10 MG, QD
     Dates: start: 20040601

REACTIONS (3)
  - DYSGEUSIA [None]
  - PAROSMIA [None]
  - SINUS PAIN [None]
